FAERS Safety Report 12771050 (Version 2)
Quarter: 2016Q3

REPORT INFORMATION
  Report Type: Spontaneous
  Country: US (occurrence: US)
  Receive Date: 20160922
  Receipt Date: 20160929
  Transmission Date: 20161109
  Serious: Yes (Hospitalization, Other)
  Sender: FDA-Public Use
  Company Number: US-DRREDDYS-USA/USA/16/0083346

PATIENT
  Age: 23 Year
  Sex: Female
  Weight: 77.11 kg

DRUGS (3)
  1. ALBUTEROL. [Interacting]
     Active Substance: ALBUTEROL
     Indication: BRONCHITIS
     Dosage: INHALER
     Route: 065
  2. LEVOFLOXACIN TABLETS [Suspect]
     Active Substance: LEVOFLOXACIN
     Indication: BRONCHITIS
     Route: 048
     Dates: start: 20160401
  3. AMOXICILLIN. [Suspect]
     Active Substance: AMOXICILLIN
     Indication: PRODUCT USED FOR UNKNOWN INDICATION
     Route: 065

REACTIONS (14)
  - Sensory loss [Recovering/Resolving]
  - Drug interaction [Unknown]
  - Tricuspid valve incompetence [Recovered/Resolved]
  - Fatigue [Recovering/Resolving]
  - Shock [Recovering/Resolving]
  - Chest pain [Recovering/Resolving]
  - Muscle disorder [Recovering/Resolving]
  - Bronchitis [Recovered/Resolved]
  - Tachycardia [Recovered/Resolved]
  - Rhabdomyolysis [Recovered/Resolved]
  - Pericardial effusion [Recovered/Resolved]
  - Myocarditis [Recovered/Resolved]
  - Pericarditis [Recovering/Resolving]
  - Mitral valve incompetence [Recovered/Resolved]

NARRATIVE: CASE EVENT DATE: 20160402
